FAERS Safety Report 16083396 (Version 1)
Quarter: 2019Q1

REPORT INFORMATION
  Report Type: Spontaneous
  Country: US (occurrence: US)
  Receive Date: 20190318
  Receipt Date: 20190318
  Transmission Date: 20190418
  Serious: No
  Sender: FDA-Public Use
  Company Number: US-GLAXOSMITHKLINE-US2019AMR043800

PATIENT
  Sex: Female

DRUGS (2)
  1. DICLOFENAC GEL [Suspect]
     Active Substance: DICLOFENAC
     Indication: ARTHRITIS
     Dosage: UNK
  2. NORCO [Suspect]
     Active Substance: ACETAMINOPHEN\HYDROCODONE BITARTRATE
     Indication: ARTHRITIS
     Dosage: UNK

REACTIONS (2)
  - Contraindicated product administered [Unknown]
  - Off label use [Unknown]
